FAERS Safety Report 19585024 (Version 11)
Quarter: 2022Q3

REPORT INFORMATION
  Report Type: Report from Study
  Country: DE (occurrence: DE)
  Receive Date: 20210720
  Receipt Date: 20220928
  Transmission Date: 20221026
  Serious: Yes (Hospitalization, Other)
  Sender: FDA-Public Use
  Company Number: NVSC2021DE158738

PATIENT
  Sex: Female
  Weight: 74 kg

DRUGS (49)
  1. COSENTYX [Suspect]
     Active Substance: SECUKINUMAB
     Indication: Psoriatic arthropathy
     Dosage: 150 MG, QMO
     Route: 065
     Dates: start: 201610, end: 202010
  2. COSENTYX [Suspect]
     Active Substance: SECUKINUMAB
     Dosage: 300 MG, QMO (PRE-FILLED PEN)
     Route: 058
     Dates: start: 202010
  3. COSENTYX [Suspect]
     Active Substance: SECUKINUMAB
     Dosage: 150 MG (ONCE)
     Route: 058
     Dates: start: 20210703, end: 20210703
  4. COSENTYX [Suspect]
     Active Substance: SECUKINUMAB
     Dosage: 150 MG (ONCE)
     Route: 058
     Dates: start: 20210703, end: 20210703
  5. COSENTYX [Suspect]
     Active Substance: SECUKINUMAB
     Dosage: 150 MG (ONCE)
     Route: 058
     Dates: start: 20210731, end: 20210731
  6. COSENTYX [Suspect]
     Active Substance: SECUKINUMAB
     Dosage: 150 MG (ONCE)  (PREFILLED PEN, PER APPLICATION)
     Route: 058
     Dates: start: 20210731, end: 20210731
  7. COSENTYX [Suspect]
     Active Substance: SECUKINUMAB
     Dosage: 150 MG (ONCE)
     Route: 058
     Dates: start: 20210904, end: 20210904
  8. COSENTYX [Suspect]
     Active Substance: SECUKINUMAB
     Dosage: 300 MG (ONCE)
     Route: 058
     Dates: start: 20210904, end: 20210904
  9. COSENTYX [Suspect]
     Active Substance: SECUKINUMAB
     Dosage: 150 MG (ONCE)
     Route: 058
     Dates: start: 20211003, end: 20211003
  10. COSENTYX [Suspect]
     Active Substance: SECUKINUMAB
     Dosage: 300 MG (PER APPLICATION)
     Route: 058
     Dates: start: 20211003, end: 20211003
  11. COSENTYX [Suspect]
     Active Substance: SECUKINUMAB
     Dosage: 300 MG (PER APPLICATION)
     Route: 065
     Dates: start: 20211122, end: 20211122
  12. COSENTYX [Suspect]
     Active Substance: SECUKINUMAB
     Dosage: 300 MG (ONCE)
     Route: 065
     Dates: start: 20211218, end: 20211218
  13. COSENTYX [Suspect]
     Active Substance: SECUKINUMAB
     Dosage: 300 MG, ONCE
     Route: 065
     Dates: start: 20220115, end: 20220115
  14. COSENTYX [Suspect]
     Active Substance: SECUKINUMAB
     Dosage: 300 MG, ONCE
     Route: 065
     Dates: start: 20220220
  15. COSENTYX [Suspect]
     Active Substance: SECUKINUMAB
     Dosage: 300 MG, (PER APPLICATION)
     Route: 065
     Dates: start: 20220319, end: 20220319
  16. COSENTYX [Suspect]
     Active Substance: SECUKINUMAB
     Dosage: 300 MG (ONCE)
     Route: 065
     Dates: start: 20220416
  17. MORPHINE SULFATE [Suspect]
     Active Substance: MORPHINE SULFATE
     Indication: Chronic idiopathic pain syndrome
     Dosage: 20 MG, TID
     Route: 048
     Dates: start: 2010, end: 20210509
  18. MORPHINE SULFATE [Suspect]
     Active Substance: MORPHINE SULFATE
     Indication: Back pain
     Dosage: 10 MG, TID
     Route: 048
     Dates: start: 20210510, end: 20210813
  19. MORPHINE SULFATE [Suspect]
     Active Substance: MORPHINE SULFATE
     Dosage: 10 MG, BID
     Route: 048
     Dates: start: 20210814, end: 20211003
  20. MORPHINE SULFATE [Suspect]
     Active Substance: MORPHINE SULFATE
     Dosage: 10 MG, QID
     Route: 048
     Dates: start: 20211004
  21. MORPHINE SULFATE [Suspect]
     Active Substance: MORPHINE SULFATE
     Dosage: 20 MG, TID
     Route: 048
     Dates: start: 20211016
  22. MORPHINE SULFATE [Suspect]
     Active Substance: MORPHINE SULFATE
     Dosage: 20 MG, QID
     Route: 048
     Dates: start: 20220207
  23. MORPHINE SULFATE [Suspect]
     Active Substance: MORPHINE SULFATE
     Dosage: 20 MG, TID
     Route: 048
     Dates: start: 20220328
  24. MORPHINE SULFATE [Suspect]
     Active Substance: MORPHINE SULFATE
     Dosage: 10 MG, PRN
     Route: 048
     Dates: start: 20220420
  25. PREDNISOLONE [Concomitant]
     Active Substance: PREDNISOLONE
     Indication: Psoriatic arthropathy
     Dosage: 5 MG, QD
     Route: 048
     Dates: start: 20210420, end: 20211018
  26. PREDNISOLONE [Concomitant]
     Active Substance: PREDNISOLONE
     Indication: Axial spondyloarthritis
     Dosage: 10 MG, QD
     Route: 048
     Dates: start: 20211019
  27. CHOLECALCIFEROL [Concomitant]
     Active Substance: CHOLECALCIFEROL
     Indication: Osteoporosis prophylaxis
     Dosage: 20000 IU, QW
     Route: 048
     Dates: start: 2020
  28. PANTOPRAZOLE [Concomitant]
     Active Substance: PANTOPRAZOLE
     Indication: Gastritis prophylaxis
     Dosage: 40 MG, QD
     Route: 048
     Dates: start: 2012
  29. CELECOXIB [Concomitant]
     Active Substance: CELECOXIB
     Indication: Psoriatic arthropathy
     Dosage: 200 MG, BID
     Route: 048
     Dates: start: 2017
  30. FENTANYL [Concomitant]
     Active Substance: FENTANYL
     Indication: Chronic idiopathic pain syndrome
     Dosage: 100 UG (EVERY THIRD DAY)
     Route: 062
     Dates: start: 2015, end: 20210509
  31. FENTANYL [Concomitant]
     Active Substance: FENTANYL
     Dosage: 100 MG /100 ?G, EVERY THIRD DAY
     Route: 062
     Dates: start: 2015
  32. CARBAMAZEPINE [Concomitant]
     Active Substance: CARBAMAZEPINE
     Indication: Epilepsy
     Dosage: 600 MG, BID
     Route: 048
     Dates: start: 1990
  33. OXAZEPAM [Concomitant]
     Active Substance: OXAZEPAM
     Indication: Anxiety
     Dosage: 10 MG, BID
     Route: 048
     Dates: start: 2017, end: 20210509
  34. METAMIZOLE [Concomitant]
     Active Substance: METAMIZOLE
     Indication: Psoriatic arthropathy
     Dosage: 500 MG, PRN  (AS NEEDED)
     Route: 048
     Dates: start: 2019
  35. METAMIZOLE [Concomitant]
     Active Substance: METAMIZOLE
     Indication: Chronic idiopathic pain syndrome
  36. FOLIC ACID [Concomitant]
     Active Substance: FOLIC ACID
     Indication: Prophylaxis
     Dosage: 5 MG, QD
     Route: 048
     Dates: start: 2007, end: 20211018
  37. MUCOFALK [Concomitant]
     Indication: Gastrointestinal motility disorder
     Dosage: 5 MG, QD
     Route: 048
     Dates: start: 2017, end: 20210426
  38. MUCOFALK [Concomitant]
     Dosage: 5 MG, QD
     Route: 048
     Dates: start: 20210514
  39. ESTRAMON [Concomitant]
     Indication: Hormone replacement therapy
     Dosage: 50 UG EVERY 3 DAYS
     Route: 061
     Dates: start: 1995, end: 20210803
  40. LACTOSE [Concomitant]
     Active Substance: LACTOSE
     Indication: Gastrointestinal motility disorder
     Dosage: 1 DOSAGE FORM, PRN (1 TABLESPOON AS NEEDED)
     Route: 048
     Dates: start: 20210515
  41. ZINC ASPARTATE [Concomitant]
     Active Substance: ZINC ASPARTATE
     Indication: Multi-vitamin deficiency
     Dosage: 1 DF, QD (50)
     Route: 048
     Dates: start: 20210725
  42. ZOPICLONE [Concomitant]
     Active Substance: ZOPICLONE
     Indication: Sleep disorder
     Dosage: 7.5 MG, PRN (AS NEEDED)
     Route: 048
     Dates: start: 20210515, end: 202203
  43. AMLODIPINE [Concomitant]
     Active Substance: AMLODIPINE BESYLATE
     Indication: Hypertension
     Dosage: 5 MG, QD
     Route: 048
     Dates: start: 20210515, end: 20210522
  44. METOPROLOL SUCCINATE [Concomitant]
     Active Substance: METOPROLOL SUCCINATE
     Indication: Tachycardia
     Dosage: 23.75 MG, QD
     Route: 048
     Dates: start: 20210517
  45. TETRA [Concomitant]
     Indication: Influenza immunisation
     Dosage: 0.5 ML, QD
     Route: 030
     Dates: start: 20211115, end: 20211115
  46. PARACETAMOL COMP [Concomitant]
     Indication: Chronic idiopathic pain syndrome
     Dosage: 1 DOSAGE FORM, PRN (AS NEEDED)
     Route: 048
     Dates: start: 20210614
  47. MORPHIN ARISTO [Concomitant]
     Indication: Chronic idiopathic pain syndrome
     Dosage: 20 MG, PRN (AS NEEDED)
     Route: 048
     Dates: start: 20220207, end: 20220419
  48. MORPHIN ARISTO [Concomitant]
     Indication: Back pain
     Dosage: 20 MG, EVERY OTHER DAY(20ML/ML)
     Route: 048
     Dates: start: 20220420
  49. MOVICOL [Concomitant]
     Active Substance: POLYETHYLENE GLYCOL 3350\POTASSIUM CHLORIDE\SODIUM BICARBONATE\SODIUM CHLORIDE
     Indication: Gastrointestinal examination abnormal
     Dosage: 1 DOSAGE FORM, PRN (1 BAG AS NEEDED)
     Route: 048
     Dates: start: 202111

REACTIONS (16)
  - Ileus [Recovered/Resolved]
  - Ileus paralytic [Recovered/Resolved]
  - Bowen^s disease [Not Recovered/Not Resolved]
  - Gastrointestinal infection [Recovered/Resolved]
  - Norovirus infection [Recovered/Resolved]
  - Urinary tract infection [Recovered/Resolved]
  - Urinary tract infection [Recovered/Resolved]
  - Urinary incontinence [Unknown]
  - Nasopharyngitis [Recovered/Resolved]
  - Arthralgia [Recovering/Resolving]
  - Oedema [Recovered/Resolved]
  - Urinary tract infection [Recovered/Resolved]
  - Constipation [Recovered/Resolved]
  - Psoriasis [Recovered/Resolved]
  - Back pain [Not Recovered/Not Resolved]
  - Vitamin B12 deficiency [Recovered/Resolved]

NARRATIVE: CASE EVENT DATE: 20210426
